FAERS Safety Report 23566494 (Version 3)
Quarter: 2024Q1

REPORT INFORMATION
  Report Type: Spontaneous
  Country: IT (occurrence: IT)
  Receive Date: 20240226
  Receipt Date: 20240308
  Transmission Date: 20240410
  Serious: Yes (Death, Other)
  Sender: FDA-Public Use
  Company Number: IT-ASPEN-GLO2024IT000933

PATIENT
  Age: 42 Year
  Sex: Male

DRUGS (16)
  1. FLUDARABINE [Suspect]
     Active Substance: FLUDARABINE PHOSPHATE
     Indication: Hepatosplenic T-cell lymphoma
     Dosage: 50 MILLIGRAM/SQ. METER, QD (CONDITIONING REGIMEN DAY 5 AND DAY 3)
     Route: 065
     Dates: start: 2023, end: 2023
  2. FLUDARABINE [Suspect]
     Active Substance: FLUDARABINE PHOSPHATE
     Indication: Bone marrow conditioning regimen
  3. FLUDARABINE [Suspect]
     Active Substance: FLUDARABINE PHOSPHATE
     Indication: Allogenic stem cell transplantation
  4. METHOTREXATE [Suspect]
     Active Substance: METHOTREXATE
     Indication: Prophylaxis against graft versus host disease
     Dosage: UNK, SHORT-COURSE
     Route: 065
  5. BUSULFAN [Suspect]
     Active Substance: BUSULFAN
     Indication: Hepatosplenic T-cell lymphoma
     Dosage: 3.2 MILLIGRAM/KILOGRAM, QD
     Route: 065
     Dates: start: 2023, end: 2023
  6. BUSULFAN [Suspect]
     Active Substance: BUSULFAN
     Indication: Bone marrow conditioning regimen
  7. CYCLOSPORINE [Suspect]
     Active Substance: CYCLOSPORINE
     Indication: Prophylaxis against graft versus host disease
     Dosage: UNK
     Route: 065
  8. THIOTEPA [Suspect]
     Active Substance: THIOTEPA
     Indication: Hepatosplenic T-cell lymphoma
     Dosage: 5 MILLIGRAM/KILOGRAM, QD (DAY 7 AND 6)
     Route: 065
     Dates: start: 2023, end: 2023
  9. THIOTEPA [Suspect]
     Active Substance: THIOTEPA
     Indication: Bone marrow conditioning regimen
  10. THYMOGLOBULINE [Suspect]
     Active Substance: LAPINE T-LYMPHOCYTE IMMUNE GLOBULIN
     Indication: Prophylaxis against graft versus host disease
     Dosage: UNK
     Route: 065
  11. DEXAMETHASONE [Concomitant]
     Active Substance: DEXAMETHASONE
     Indication: Hepatosplenic T-cell lymphoma
     Dosage: UNK
     Route: 065
  12. CARBOPLATIN [Concomitant]
     Active Substance: CARBOPLATIN
     Indication: Hepatosplenic T-cell lymphoma
     Dosage: UNK
     Route: 065
  13. OXALIPLATIN [Concomitant]
     Active Substance: OXALIPLATIN
     Indication: Hepatosplenic T-cell lymphoma
     Dosage: UNK
     Route: 065
  14. CYTARABINE [Concomitant]
     Active Substance: CYTARABINE
     Indication: Hepatosplenic T-cell lymphoma
     Dosage: UNK
     Route: 065
  15. ETOPOSIDE [Concomitant]
     Active Substance: ETOPOSIDE
     Indication: Hepatosplenic T-cell lymphoma
     Dosage: UNK 3 CYCLES
     Route: 065
  16. IFOSFAMIDE [Concomitant]
     Active Substance: IFOSFAMIDE
     Indication: Hepatosplenic T-cell lymphoma
     Dosage: UNK
     Route: 065

REACTIONS (9)
  - Vanishing bile duct syndrome [Fatal]
  - Off label use [Fatal]
  - Acute graft versus host disease [Recovered/Resolved]
  - Bacterial test positive [Recovered/Resolved]
  - Pyrexia [Recovered/Resolved]
  - Renal impairment [Unknown]
  - Pseudomonas infection [Recovered/Resolved]
  - Acute graft versus host disease in liver [Unknown]
  - Acute graft versus host disease in skin [Recovered/Resolved]
